FAERS Safety Report 7765692-8 (Version None)
Quarter: 2011Q3

REPORT INFORMATION
  Report Type: 
  Country: None (occurrence: None)
  Receive Date: 20110921
  Receipt Date: 20110916
  Transmission Date: 20111222
  Serious: Yes (Hospitalization, Other)
  Sender: FDA-Public Use
  Company Number: US-PFIZER INC-HQWYE366926FEB04

PATIENT
  Sex: Female
  Weight: 56.7 kg

DRUGS (10)
  1. NAPROXEN [Suspect]
     Dosage: UNK
  2. DARVOCET-N 50 [Concomitant]
     Dosage: UNK
  3. EFFEXOR XR [Suspect]
     Indication: DEPRESSION
     Dosage: 75 MG, UNK
     Route: 048
     Dates: start: 20030610, end: 20030923
  4. TYLENOL-500 [Suspect]
     Dosage: 8 DF, 1X/DAY
     Route: 048
  5. VALTREX [Concomitant]
     Dosage: UNK
  6. EFFEXOR XR [Suspect]
     Indication: MIGRAINE
  7. KETOPROFEN [Suspect]
     Indication: HEADACHE
     Dosage: UNK
     Route: 048
  8. CIMETIDINE [Suspect]
     Dosage: UNK
  9. AUGMENTIN '125' [Concomitant]
     Dosage: UNK
  10. EFFEXOR XR [Suspect]
     Indication: MOOD SWINGS

REACTIONS (18)
  - AGITATION [None]
  - VOMITING [None]
  - IMPULSIVE BEHAVIOUR [None]
  - ABNORMAL BEHAVIOUR [None]
  - NAUSEA [None]
  - WEIGHT DECREASED [None]
  - DRUG INEFFECTIVE [None]
  - EMOTIONAL DISORDER [None]
  - RESTLESSNESS [None]
  - SUICIDE ATTEMPT [None]
  - INTENTIONAL OVERDOSE [None]
  - IRRITABILITY [None]
  - AGGRESSION [None]
  - SUICIDAL IDEATION [None]
  - EUPHORIC MOOD [None]
  - HOSTILITY [None]
  - POOR QUALITY SLEEP [None]
  - ANGER [None]
